FAERS Safety Report 8598129-X (Version None)
Quarter: 2012Q3

REPORT INFORMATION
  Report Type: 
  Country: None (occurrence: None)
  Receive Date: 20120816
  Receipt Date: 20120808
  Transmission Date: 20120928
  Serious: Yes (Other)
  Sender: FDA-Public Use
  Company Number: JP-ALLERGAN-1210985US

PATIENT
  Age: 75 Year
  Sex: Male

DRUGS (6)
  1. LUMIGAN [Suspect]
     Indication: GLAUCOMA
     Dosage: 1 GTT, QHS
     Route: 047
     Dates: start: 20110722
  2. TIMOLOL MALEATE [Concomitant]
     Dosage: UNK
     Route: 047
     Dates: start: 20070420
  3. TIMOLOL MALEATE [Concomitant]
     Dosage: UNK
     Route: 047
     Dates: start: 20080116, end: 20120420
  4. TRUSOPT [Concomitant]
     Dosage: UNK
     Route: 047
     Dates: start: 20070815
  5. ASPARA POTASSIUM [Concomitant]
     Dosage: UNK
     Dates: start: 20120217, end: 20120727
  6. DIAMOX [Concomitant]
     Dosage: UNK
     Dates: start: 20120217, end: 20120727

REACTIONS (1)
  - INTRAOCULAR PRESSURE INCREASED [None]
